FAERS Safety Report 16945067 (Version 2)
Quarter: 2019Q4

REPORT INFORMATION
  Report Type: Report from Study
  Country: US (occurrence: US)
  Receive Date: 20191022
  Receipt Date: 20191203
  Transmission Date: 20200122
  Serious: Yes (Hospitalization)
  Sender: FDA-Public Use
  Company Number: US-BAYER-2019-166671

PATIENT
  Age: 56 Year
  Sex: Male

DRUGS (3)
  1. NEXAVAR [Suspect]
     Active Substance: SORAFENIB
     Indication: HEPATOCELLULAR CARCINOMA
     Dosage: 400 MG, BID
     Dates: start: 20190725, end: 20190829
  2. NEXAVAR [Suspect]
     Active Substance: SORAFENIB
     Indication: HEPATOCELLULAR CARCINOMA
     Dosage: 400 MG, BID
  3. NEXAVAR [Suspect]
     Active Substance: SORAFENIB
     Indication: HEPATOCELLULAR CARCINOMA
     Dosage: 200 MG, BID
     Route: 048
     Dates: end: 2019

REACTIONS (8)
  - Pain [Unknown]
  - Adverse drug reaction [None]
  - Dehydration [None]
  - Hospitalisation [Unknown]
  - Abdominal pain upper [None]
  - Product dose omission [None]
  - Drug intolerance [None]
  - Diarrhoea [None]

NARRATIVE: CASE EVENT DATE: 20190829
